FAERS Safety Report 7564940-7 (Version None)
Quarter: 2011Q2

REPORT INFORMATION
  Report Type: 
  Country: None (occurrence: None)
  Receive Date: 20110622
  Receipt Date: 20110317
  Transmission Date: 20111010
  Serious: Yes (Death)
  Sender: FDA-Public Use
  Company Number: US-MYLANLABS-2011S1003978

PATIENT
  Age: 51 Year
  Sex: Female

DRUGS (2)
  1. MIRTAZAPINE [Concomitant]
     Route: 048
  2. CLOZAPINE [Suspect]
     Indication: SCHIZOPHRENIA
     Route: 048
     Dates: start: 20090206

REACTIONS (1)
  - MULTI-ORGAN FAILURE [None]
